FAERS Safety Report 7853363-9 (Version None)
Quarter: 2011Q4

REPORT INFORMATION
  Report Type: 
  Country: None (occurrence: None)
  Receive Date: 20111026
  Receipt Date: 20111018
  Transmission Date: 20120403
  Serious: Yes (Life-Threatening, Hospitalization)
  Sender: FDA-Public Use
  Company Number: NL-TEVA-306249ISR

PATIENT
  Sex: Female

DRUGS (3)
  1. METHOTREXATE [Suspect]
     Dates: start: 20080901
  2. ADALIMUMAB [Suspect]
     Indication: RHEUMATOID ARTHRITIS
     Dates: start: 20070401
  3. ETANERCEPT [Suspect]
     Indication: RHEUMATOID ARTHRITIS
     Dates: start: 20080701

REACTIONS (1)
  - ACUTE MYELOID LEUKAEMIA [None]
